FAERS Safety Report 14354682 (Version 1)
Quarter: 2018Q1

REPORT INFORMATION
  Report Type: Spontaneous
  Country: US (occurrence: US)
  Receive Date: 20180105
  Receipt Date: 20180105
  Transmission Date: 20180509
  Serious: Yes (Other)
  Sender: FDA-Public Use
  Company Number: US-BRISTOL-MYERS SQUIBB COMPANY-BMS-2017-119181

PATIENT
  Sex: Female
  Weight: 111.1 kg

DRUGS (1)
  1. ELIQUIS [Suspect]
     Active Substance: APIXABAN
     Indication: COAGULATION FACTOR V LEVEL ABNORMAL
     Dosage: 5 MG, BID
     Route: 048
     Dates: start: 2016

REACTIONS (2)
  - Osteomyelitis [Unknown]
  - Product use in unapproved indication [Unknown]
